FAERS Safety Report 19004530 (Version 1)
Quarter: 2021Q1

REPORT INFORMATION
  Report Type: Spontaneous
  Country: US (occurrence: US)
  Receive Date: 20210312
  Receipt Date: 20210312
  Transmission Date: 20210420
  Serious: No
  Sender: FDA-Public Use
  Company Number: US-PFIZER INC-2016496784

PATIENT
  Age: 67 Year
  Sex: Female

DRUGS (22)
  1. ESCITALOPRAM OXALATE. [Concomitant]
     Active Substance: ESCITALOPRAM OXALATE
     Indication: ANXIETY
  2. REQUIP [Concomitant]
     Active Substance: ROPINIROLE HYDROCHLORIDE
     Indication: RESTLESS LEGS SYNDROME
     Dosage: 0.25 MG, AS NEEDED(1 TABLET BEDTIME)
     Route: 048
     Dates: start: 20130315
  3. VITAMIN D3 [Concomitant]
     Active Substance: CHOLECALCIFEROL
     Indication: VITAMIN D DEFICIENCY
     Dosage: 1000 IU (ONE TO TWO TABLETS DAILY)
     Route: 048
  4. LYRICA [Suspect]
     Active Substance: PREGABALIN
     Dosage: 100 MG, 3X/DAY
     Route: 048
  5. LIDOCAINE. [Concomitant]
     Active Substance: LIDOCAINE
     Indication: PAIN
  6. LYRICA [Suspect]
     Active Substance: PREGABALIN
     Indication: NEURALGIA
     Dosage: 50 MG, 3X/DAY
     Route: 048
     Dates: start: 20110805
  7. BACLOFEN. [Concomitant]
     Active Substance: BACLOFEN
     Indication: FIBROMYALGIA
     Dosage: 10 MG, AS NEEDED (TAKE 1 TABLET BY MOUTH 3 TIMES A DAY)
     Route: 048
     Dates: start: 20151124
  8. LYRICA [Suspect]
     Active Substance: PREGABALIN
     Indication: NEUROPATHY PERIPHERAL
     Dosage: 50 MG, 3X/DAY (25 MG 2 CAPS)
     Route: 048
  9. LYRICA [Suspect]
     Active Substance: PREGABALIN
     Dosage: 100 MG, 2X/DAY (TAKE 4 CAPSULES (100MG TOTAL) BY MOUTH 2 (TWO) TIMES A DAY)
     Route: 048
     Dates: start: 20190130
  10. LORAZEPAM. [Concomitant]
     Active Substance: LORAZEPAM
     Indication: AGORAPHOBIA
     Dosage: 2 MG (1 TO 3 TABLETS BY MOUTH EVERY DAY AS DIRECTED)
     Route: 048
     Dates: start: 20150306
  11. LORAZEPAM. [Concomitant]
     Active Substance: LORAZEPAM
     Indication: PANIC DISORDER
  12. ERGOCALCIFEROL. [Concomitant]
     Active Substance: ERGOCALCIFEROL
     Indication: VITAMIN D DEFICIENCY
     Dosage: 50000 IU, WEEKLY
     Route: 048
     Dates: start: 20140610
  13. LYRICA [Suspect]
     Active Substance: PREGABALIN
     Dosage: 50 MG, 3X/DAY
     Route: 048
     Dates: start: 20141103
  14. LYRICA [Suspect]
     Active Substance: PREGABALIN
     Dosage: 6 DF, DAILY (TAKE 6 CAPSULES A DAY)
  15. PROAIR HFA [Concomitant]
     Active Substance: ALBUTEROL SULFATE
     Indication: ASTHMA
     Dosage: UNK, AS NEEDED (INHALE 2 PUFFS EVERY 4?6 HOURS)(108 (90 BASE) MCG/ACT)
     Route: 055
     Dates: start: 20140626
  16. PRILOSEC [Concomitant]
     Active Substance: OMEPRAZOLE MAGNESIUM
     Indication: GASTROOESOPHAGEAL REFLUX DISEASE
     Dosage: 20 MG, 2X/DAY
  17. MACROBID [Concomitant]
     Active Substance: NITROFURANTOIN\NITROFURANTOIN MONOHYDRATE
     Indication: URINARY TRACT INFECTION
     Dosage: 100 MG, AS NEEDED (1 CAPSULE DAILY)
     Route: 048
     Dates: start: 20130315
  18. OXYCODONE HYDROCHLORIDE. [Concomitant]
     Active Substance: OXYCODONE HYDROCHLORIDE
     Indication: CERVICAL SPINAL STENOSIS
     Dosage: 10 MG, 3X/DAY
     Route: 048
     Dates: start: 20141103
  19. LIDOCAINE. [Concomitant]
     Active Substance: LIDOCAINE
     Indication: CERVICAL SPINAL STENOSIS
     Dosage: UNK, 4X/DAY (APPLY TO AFFECTED AREA 4 TIMES A DAY AS DIRECTED)
     Dates: start: 20150825
  20. OXYCODONE HYDROCHLORIDE. [Concomitant]
     Active Substance: OXYCODONE HYDROCHLORIDE
     Indication: PAIN
  21. ESCITALOPRAM OXALATE. [Concomitant]
     Active Substance: ESCITALOPRAM OXALATE
     Indication: DEPRESSION
     Dosage: 20 MG, 1X/DAY
     Route: 048
     Dates: start: 20150206
  22. CLINDAMYCIN HCL [Concomitant]
     Active Substance: CLINDAMYCIN HYDROCHLORIDE
     Indication: SUBACUTE ENDOCARDITIS
     Dosage: 600 MG (1 HOUR PRIOR TO PROCEDURE)
     Route: 048
     Dates: start: 20160922

REACTIONS (3)
  - Feeling abnormal [Unknown]
  - Product dose omission issue [Unknown]
  - Intentional product use issue [Unknown]
